FAERS Safety Report 17749981 (Version 4)
Quarter: 2021Q1

REPORT INFORMATION
  Report Type: Spontaneous
  Country: US (occurrence: US)
  Receive Date: 20200506
  Receipt Date: 20210108
  Transmission Date: 20210419
  Serious: Yes (Other)
  Sender: FDA-Public Use
  Company Number: NVSC2020US122971

PATIENT
  Sex: Female

DRUGS (1)
  1. MEKINIST [Suspect]
     Active Substance: TRAMETINIB DIMETHYL SULFOXIDE
     Indication: OVARIAN CANCER
     Dosage: 1.5 MG, QD
     Route: 048
     Dates: start: 20200307

REACTIONS (11)
  - Dry skin [Unknown]
  - Rash [Unknown]
  - Nail infection [Unknown]
  - Onychoclasis [Unknown]
  - Product use in unapproved indication [Unknown]
  - Erythema [Unknown]
  - Skin irritation [Unknown]
  - Acne [Unknown]
  - Staphylococcal infection [Unknown]
  - Alopecia [Unknown]
  - Tongue ulceration [Unknown]
